FAERS Safety Report 4844172-3 (Version None)
Quarter: 2005Q4

REPORT INFORMATION
  Report Type: 
  Country: None (occurrence: None)
  Receive Date: 20051202
  Receipt Date: 20051123
  Transmission Date: 20060501
  Serious: Yes (Hospitalization)
  Sender: FDA-Public Use
  Company Number: PHBS2005LB17299

PATIENT
  Age: 31 Year
  Sex: Female

DRUGS (1)
  1. ERGOTAMINE TARTRATE [Suspect]
     Indication: MIGRAINE
     Route: 054

REACTIONS (9)
  - ANAL STENOSIS [None]
  - CONSTIPATION [None]
  - FAECAL INCONTINENCE [None]
  - FEMALE GENITAL TRACT FISTULA [None]
  - PROCTALGIA [None]
  - RECTAL STENOSIS [None]
  - RECTAL ULCER [None]
  - SURGERY [None]
  - VAGINAL DISCHARGE [None]
